FAERS Safety Report 10461106 (Version 1)
Quarter: 2014Q3

REPORT INFORMATION
  Report Type: Spontaneous
  Country: US (occurrence: US)
  Receive Date: 20140918
  Receipt Date: 20140918
  Transmission Date: 20150326
  Serious: Yes (Other)
  Sender: FDA-Public Use
  Company Number: US-BAYER-2014-138299

PATIENT
  Sex: Male

DRUGS (2)
  1. XARELTO [Concomitant]
     Active Substance: RIVAROXABAN
  2. ALEVE [Suspect]
     Active Substance: NAPROXEN SODIUM
     Dosage: 220 MG, UNK

REACTIONS (1)
  - Atrial fibrillation [Unknown]
